FAERS Safety Report 7826201-8 (Version None)
Quarter: 2011Q4

REPORT INFORMATION
  Report Type: 
  Country: None (occurrence: None)
  Receive Date: 20111020
  Receipt Date: 20111012
  Transmission Date: 20120403
  Serious: Yes (Hospitalization)
  Sender: FDA-Public Use
  Company Number: DE-BIOGENIDEC-2011BI039035

PATIENT
  Age: 36 Year
  Sex: Female
  Weight: 66 kg

DRUGS (2)
  1. FALITHROM [Concomitant]
     Indication: THROMBOSIS PROPHYLAXIS
     Dates: start: 20101101
  2. TYSABRI [Suspect]
     Indication: MULTIPLE SCLEROSIS
     Route: 042
     Dates: start: 20090101, end: 20110720

REACTIONS (3)
  - MENORRHAGIA [None]
  - STERNAL FRACTURE [None]
  - MULTIPLE SCLEROSIS RELAPSE [None]
